FAERS Safety Report 26052328 (Version 1)
Quarter: 2025Q4

REPORT INFORMATION
  Report Type: Report from Study
  Country: US (occurrence: US)
  Receive Date: 20251117
  Receipt Date: 20251117
  Transmission Date: 20260117
  Serious: Yes (Hospitalization, Disabling, Other)
  Sender: TEVA
  Company Number: US-TEVA-VS-3391748

PATIENT
  Age: 50 Year
  Sex: Female

DRUGS (5)
  1. AUSTEDO [Suspect]
     Active Substance: DEUTETRABENAZINE
     Indication: Tardive dyskinesia
     Route: 048
     Dates: start: 20240404, end: 20240429
  2. AUSTEDO [Suspect]
     Active Substance: DEUTETRABENAZINE
     Indication: Tardive dyskinesia
     Route: 048
     Dates: start: 20240430, end: 20240601
  3. LOXAPINE [Concomitant]
     Active Substance: LOXAPINE
     Indication: Schizoaffective disorder
     Route: 048
     Dates: start: 20231130, end: 20240507
  4. LOXAPINE [Concomitant]
     Active Substance: LOXAPINE
     Indication: Schizoaffective disorder
     Route: 048
     Dates: start: 20240507
  5. COGENTIN [Concomitant]
     Active Substance: BENZTROPINE MESYLATE
     Indication: Tardive dyskinesia
     Route: 048
     Dates: start: 20240202, end: 20240404

REACTIONS (1)
  - Rhabdomyolysis [Recovering/Resolving]

NARRATIVE: CASE EVENT DATE: 20240520
